FAERS Safety Report 24324757 (Version 2)
Quarter: 2025Q2

REPORT INFORMATION
  Report Type: Report from Study
  Country: US (occurrence: US)
  Receive Date: 20240916
  Receipt Date: 20250607
  Transmission Date: 20250717
  Serious: No
  Sender: STEMLINE THERAPEUTICS
  Company Number: US-Stemline Therapeutics, Inc.-2024ST002201

PATIENT

DRUGS (3)
  1. ORSERDU [Suspect]
     Active Substance: ELACESTRANT
     Indication: Breast cancer female
     Dosage: 345 MG, DAILY
     Route: 048
     Dates: start: 20240305
  2. ORSERDU [Suspect]
     Active Substance: ELACESTRANT
     Dosage: 258 MG, DAILY (86MG TABLETS, 3 TABLETS, ONCE A DAY)
     Route: 048
  3. ORSERDU [Suspect]
     Active Substance: ELACESTRANT
     Dosage: 172 MG, DAILY (TAKE 2 86MG TABLETS ONCE DAILY)
     Route: 048

REACTIONS (15)
  - Pain [Unknown]
  - Muscle spasms [Unknown]
  - Paraesthesia [Recovering/Resolving]
  - Ear pain [Recovering/Resolving]
  - Oedema peripheral [Unknown]
  - Hepatic enzyme increased [Unknown]
  - Back pain [Unknown]
  - Arthralgia [Not Recovered/Not Resolved]
  - Asthenia [Unknown]
  - Pain in extremity [Unknown]
  - Neck pain [Recovering/Resolving]
  - Musculoskeletal pain [Recovering/Resolving]
  - Headache [Unknown]
  - Myalgia [Unknown]
  - Underdose [Unknown]

NARRATIVE: CASE EVENT DATE: 20240101
